FAERS Safety Report 25112668 (Version 1)
Quarter: 2025Q1

REPORT INFORMATION
  Report Type: Spontaneous
  Country: US (occurrence: US)
  Receive Date: 20250324
  Receipt Date: 20250324
  Transmission Date: 20250409
  Serious: Yes (Other)
  Sender: TARO
  Company Number: US-TARO PHARMACEUTICALS USA INC.-2025TAR01107

PATIENT

DRUGS (1)
  1. MUPIROCIN [Suspect]
     Active Substance: MUPIROCIN
     Indication: Cellulitis
     Route: 061
     Dates: start: 20240813, end: 20241008

REACTIONS (19)
  - Pharyngeal haemorrhage [Unknown]
  - Pain [Unknown]
  - Skin fissures [Recovered/Resolved]
  - Wound complication [Unknown]
  - Renal pain [Unknown]
  - Dyspnoea [Unknown]
  - Dry mouth [Unknown]
  - Plicated tongue [Unknown]
  - Tongue haemorrhage [Unknown]
  - Pain in extremity [Unknown]
  - Back pain [Unknown]
  - Faeces hard [Unknown]
  - Headache [Unknown]
  - Eye pain [Unknown]
  - Glossodynia [Unknown]
  - Tongue dry [Unknown]
  - Dry throat [Unknown]
  - Accidental exposure to product [Unknown]
  - Product formulation issue [Unknown]

NARRATIVE: CASE EVENT DATE: 20240813
